FAERS Safety Report 9563123 (Version 1)
Quarter: 2013Q3

REPORT INFORMATION
  Report Type: Spontaneous
  Country: US (occurrence: US)
  Receive Date: 20130927
  Receipt Date: 20130927
  Transmission Date: 20140515
  Serious: No
  Sender: FDA-Public Use
  Company Number: US-BRISTOL-MYERS SQUIBB COMPANY-17230756

PATIENT
  Age: 82 Year
  Sex: Male

DRUGS (6)
  1. ONGLYZA TABS [Suspect]
  2. DIOVAN [Concomitant]
  3. VITAMIN D [Concomitant]
  4. DIGOXIN [Concomitant]
  5. LEVOTHYROXINE [Concomitant]
  6. GLIMEPIRIDE [Concomitant]

REACTIONS (2)
  - Rash [Unknown]
  - Pruritus [Unknown]
